FAERS Safety Report 9321963 (Version 1)
Quarter: 2013Q2

REPORT INFORMATION
  Report Type: Report from Study
  Country: US (occurrence: US)
  Receive Date: 20130531
  Receipt Date: 20130531
  Transmission Date: 20140414
  Serious: No
  Sender: FDA-Public Use
  Company Number: US-VERTEX PHARMACEUTICALS INC-2013-006460

PATIENT
  Sex: Female
  Weight: 66 kg

DRUGS (5)
  1. VX-770 [Suspect]
     Indication: HEPATITIS C
     Dosage: 150 MG, BID
     Route: 048
  2. PRENATABS RX [Concomitant]
  3. XOPENEX [Concomitant]
  4. SALINE [Concomitant]
  5. SENNA [Concomitant]

REACTIONS (2)
  - Cough [Unknown]
  - Nasopharyngitis [Unknown]
